FAERS Safety Report 8599693-7 (Version None)
Quarter: 2012Q3

REPORT INFORMATION
  Report Type: 
  Country: None (occurrence: None)
  Receive Date: 20120816
  Receipt Date: 20120808
  Transmission Date: 20120928
  Serious: Yes (Death, Other)
  Sender: FDA-Public Use
  Company Number: DE-CELGENEUS-062-21880-12030833

PATIENT
  Age: 59 Year
  Sex: Male
  Weight: 103 kg

DRUGS (7)
  1. LEVOTHYROXINE SODIUM [Concomitant]
     Route: 065
  2. RAMIPRIL [Concomitant]
     Route: 065
  3. REVLIMID [Suspect]
     Indication: MULTIPLE MYELOMA
     Dosage: 10 MILLIGRAM
     Route: 048
     Dates: start: 20110913, end: 20120228
  4. REVLIMID [Suspect]
     Dosage: 5 MILLIGRAM
     Route: 048
     Dates: start: 20110913, end: 20120227
  5. CHOLECALCIFEROL [Concomitant]
     Route: 065
  6. REVLIMID [Suspect]
     Dosage: 25 MILLIGRAM
     Route: 048
  7. ASPIRIN [Concomitant]
     Dosage: 100 MILLIGRAM
     Route: 065

REACTIONS (3)
  - DIARRHOEA INFECTIOUS [None]
  - TRANSAMINASES INCREASED [None]
  - INFECTION [None]
